FAERS Safety Report 7415180-3 (Version None)
Quarter: 2011Q2

REPORT INFORMATION
  Report Type: 
  Country: None (occurrence: None)
  Receive Date: 20110414
  Receipt Date: 20110408
  Transmission Date: 20111010
  Serious: Yes (Hospitalization)
  Sender: FDA-Public Use
  Company Number: US-PFIZER INC-2009296595

PATIENT
  Sex: Male
  Weight: 92.2 kg

DRUGS (11)
  1. CARVEDILOL [Concomitant]
     Dosage: 10 MG, QD (EVERY DAY)
     Route: 048
  2. IRINOTECAN HCL [Suspect]
     Indication: METASTATIC GASTRIC CANCER
     Dosage: NOT PROVIDED (FOLFIRI CHEMOTHERAPY)
     Dates: start: 20090915
  3. FOLINIC ACID [Suspect]
     Indication: METASTATIC GASTRIC CANCER
     Dosage: NOT PROVIDED (FOLFIRI CHEMOTHERAPY)
     Dates: start: 20090915
  4. ERLOTINIB [Suspect]
     Dosage: 100 MG, WEEKLY
     Route: 048
     Dates: start: 20090609, end: 20090817
  5. PILOCARPINE HYDROCHLORIDE [Concomitant]
     Dosage: 5 MG, QD (EVERY DAY)
     Route: 048
  6. LEVOTHYROXINE [Concomitant]
     Dosage: 0.2 MG, EVERY DAY (QD)
     Route: 048
  7. FLUOROURACIL [Suspect]
     Indication: METASTATIC GASTRIC CANCER
     Dosage: NOT PROVIDED (FOLFIRI CHEMOTHERAPY)
     Dates: start: 20090915
  8. LANSOPRAZOLE [Concomitant]
     Dosage: 30 MG, QD (EVERYDAY)
     Route: 048
  9. CLINDAMYCIN [Concomitant]
     Dosage: 0.1 %, AS NEEDED GEL
     Route: 061
  10. TEMSIROLIMUS [Suspect]
     Indication: METASTATIC GASTRIC CANCER
     Dosage: 15 MG, WEEKLY
     Route: 042
     Dates: start: 20090616, end: 20090811
  11. DOXYCYCLINE [Concomitant]

REACTIONS (5)
  - PLEURAL EFFUSION [None]
  - PULMONARY EMBOLISM [None]
  - DYSPNOEA [None]
  - HYPOXIA [None]
  - CHEST PAIN [None]
